FAERS Safety Report 5763935-3 (Version None)
Quarter: 2008Q2

REPORT INFORMATION
  Report Type: 
  Country: None (occurrence: None)
  Receive Date: 20080606
  Receipt Date: 20080606
  Transmission Date: 20081010
  Serious: No
  Sender: FDA-Public Use
  Company Number: None

PATIENT
  Age: 51 Year
  Sex: Female
  Weight: 58.9676 kg

DRUGS (1)
  1. KENALOG [Suspect]

REACTIONS (8)
  - ABDOMINAL DISCOMFORT [None]
  - DRUG WITHDRAWAL SYNDROME [None]
  - FLUSHING [None]
  - INJECTION SITE ATROPHY [None]
  - INJECTION SITE REACTION [None]
  - INJECTION SITE SCAR [None]
  - MOOD SWINGS [None]
  - MUSCLE ATROPHY [None]
